FAERS Safety Report 11364415 (Version 1)
Quarter: 2015Q3

REPORT INFORMATION
  Report Type: Spontaneous
  Country: US (occurrence: None)
  Receive Date: 20150810
  Receipt Date: 20150810
  Transmission Date: 20151125
  Serious: No
  Sender: FDA-Public Use
  Company Number: None

PATIENT
  Sex: Female

DRUGS (2)
  1. LETROZOLE. [Suspect]
     Active Substance: LETROZOLE
  2. IBRANCE [Suspect]
     Active Substance: PALBOCICLIB
     Indication: NEOPLASM MALIGNANT
     Dosage: 125MG QD FOR 21DS
     Route: 048
     Dates: start: 20150718

REACTIONS (5)
  - Pain [None]
  - Alopecia [None]
  - Constipation [None]
  - Decreased appetite [None]
  - Musculoskeletal stiffness [None]
